FAERS Safety Report 5865593-6 (Version None)
Quarter: 2008Q3

REPORT INFORMATION
  Report Type: 
  Country: None (occurrence: None)
  Receive Date: 20080829
  Receipt Date: 20080812
  Transmission Date: 20090109
  Serious: No
  Sender: FDA-Public Use
  Company Number: US-ABBOTT-08P-163-0470577-00

PATIENT
  Sex: Female

DRUGS (4)
  1. SIMCOR [Suspect]
     Indication: BLOOD CHOLESTEROL INCREASED
     Dosage: 500/40 MG (PER THE PT CHART) NIGHTLY
     Route: 048
     Dates: start: 20080623, end: 20080624
  2. THYROID PILL [Concomitant]
     Indication: DRUG USE FOR UNKNOWN INDICATION
  3. BLOOD PRESSURE PILL [Concomitant]
     Indication: DRUG USE FOR UNKNOWN INDICATION
  4. SIMVASTATIN [Concomitant]
     Indication: DRUG USE FOR UNKNOWN INDICATION

REACTIONS (2)
  - BURNING SENSATION [None]
  - HEADACHE [None]
